FAERS Safety Report 24930355 (Version 1)
Quarter: 2025Q1

REPORT INFORMATION
  Report Type: Spontaneous
  Country: US (occurrence: US)
  Receive Date: 20250205
  Receipt Date: 20250205
  Transmission Date: 20250408
  Serious: No
  Sender: PFIZER
  Company Number: US-PFIZER INC-202500023397

PATIENT
  Sex: Female

DRUGS (2)
  1. ZAVEGEPANT [Suspect]
     Active Substance: ZAVEGEPANT
     Indication: Migraine
     Route: 045
  2. ZAVEGEPANT [Suspect]
     Active Substance: ZAVEGEPANT
     Indication: Headache

REACTIONS (1)
  - Ageusia [Recovered/Resolved]
